FAERS Safety Report 15401047 (Version 1)
Quarter: 2018Q3

REPORT INFORMATION
  Report Type: Spontaneous
  Country: DE (occurrence: DE)
  Receive Date: 20180919
  Receipt Date: 20180919
  Transmission Date: 20181010
  Serious: Yes (Hospitalization, Other)
  Sender: FDA-Public Use
  Company Number: DE-JNJFOC-20180912843

PATIENT
  Age: 62 Year
  Sex: Female

DRUGS (6)
  1. AMLODIPINE [Concomitant]
     Active Substance: AMLODIPINE BESYLATE
     Route: 048
  2. HCT [Concomitant]
     Active Substance: HYDROCHLOROTHIAZIDE
     Route: 048
  3. ALLOPURINOL. [Concomitant]
     Active Substance: ALLOPURINOL
     Route: 048
  4. BISOPROLOL [Concomitant]
     Active Substance: BISOPROLOL
     Route: 048
  5. SULPIRID [Concomitant]
     Active Substance: SULPIRIDE
     Route: 048
  6. XARELTO [Suspect]
     Active Substance: RIVAROXABAN
     Indication: DEEP VEIN THROMBOSIS
     Dosage: 4 TABLETS WITHIN TWO DAYS
     Route: 048
     Dates: end: 201808

REACTIONS (9)
  - Fall [Recovered/Resolved]
  - Balance disorder [Unknown]
  - Gait disturbance [Unknown]
  - Muscular weakness [Unknown]
  - Dysarthria [Unknown]
  - Injury [Unknown]
  - Contusion [Unknown]
  - Subdural hygroma [Unknown]
  - Vertigo [Unknown]

NARRATIVE: CASE EVENT DATE: 201808
